FAERS Safety Report 10474507 (Version 1)
Quarter: 2014Q3

REPORT INFORMATION
  Report Type: Spontaneous
  Country: BR (occurrence: BR)
  Receive Date: 20140924
  Receipt Date: 20140924
  Transmission Date: 20150326
  Serious: Yes (Other)
  Sender: FDA-Public Use
  Company Number: PHHY2014BR124706

PATIENT
  Sex: Male
  Weight: 68 kg

DRUGS (5)
  1. METFORMIN [Concomitant]
     Active Substance: METFORMIN HYDROCHLORIDE
     Indication: DIABETES MELLITUS
     Dosage: 2 DF A DAY
     Route: 048
  2. AZUKON [Concomitant]
     Active Substance: GLICLAZIDE
     Indication: CARDIAC DISORDER
  3. EXELON PATCH [Suspect]
     Active Substance: RIVASTIGMINE
     Indication: DEMENTIA ALZHEIMER^S TYPE
     Dosage: 9.5 MG, QD (ONE PATCH A DAY 10CM2)
     Route: 062
  4. QUETIAPINE [Concomitant]
     Active Substance: QUETIAPINE
     Indication: NERVOUSNESS
     Dosage: 2 DF A DAY
     Route: 048
  5. EXELON [Suspect]
     Active Substance: RIVASTIGMINE TARTRATE
     Indication: DEMENTIA ALZHEIMER^S TYPE
     Dosage: 2 DF A DAY
     Route: 048

REACTIONS (3)
  - Hypersomnia [Not Recovered/Not Resolved]
  - Gait disturbance [Not Recovered/Not Resolved]
  - Aggression [Not Recovered/Not Resolved]
